FAERS Safety Report 6841132-8 (Version None)
Quarter: 2010Q3

REPORT INFORMATION
  Report Type: 
  Country: None (occurrence: None)
  Receive Date: 20100714
  Receipt Date: 20070621
  Transmission Date: 20110219
  Serious: No
  Sender: FDA-Public Use
  Company Number: US-PFIZER INC-2007053502

PATIENT
  Sex: Female
  Weight: 79.545 kg

DRUGS (10)
  1. CHANTIX [Suspect]
     Indication: SMOKING CESSATION THERAPY
     Dates: start: 20070501
  2. LAMISIL [Suspect]
     Indication: ONYCHOMYCOSIS
     Route: 048
     Dates: start: 20070501, end: 20070620
  3. SERTACONAZOLE NITRATE [Concomitant]
  4. SYNTHROID [Concomitant]
  5. ZOLOFT [Concomitant]
  6. TRANXENE [Concomitant]
  7. TOPROL-XL [Concomitant]
  8. MELOXICAM [Concomitant]
  9. PREMPRO [Concomitant]
  10. NEXIUM [Concomitant]

REACTIONS (1)
  - RASH [None]
